FAERS Safety Report 4653024-3 (Version None)
Quarter: 2005Q2

REPORT INFORMATION
  Report Type: 
  Country: None (occurrence: None)
  Receive Date: 20050505
  Receipt Date: 20050426
  Transmission Date: 20051028
  Serious: Yes (Other)
  Sender: FDA-Public Use
  Company Number: US-NOVOPROD-243831

PATIENT
  Age: 59 Year
  Sex: Female

DRUGS (7)
  1. VAGIFEM [Suspect]
     Indication: MENOPAUSAL SYMPTOMS
     Dosage: 25 UG, UNK
     Route: 067
     Dates: start: 20020620, end: 20030609
  2. PROVERA [Suspect]
     Indication: MENOPAUSAL SYMPTOMS
     Dosage: 2.5 MG AND 10 MG
     Dates: start: 19960717
  3. PREMPRO [Suspect]
     Indication: MENOPAUSAL SYMPTOMS
     Dosage: 0.625/5
     Dates: start: 20000329, end: 20000706
  4. ANDROGEL [Suspect]
     Indication: MENOPAUSAL SYMPTOMS
     Dosage: 5MG GEL, 1%
     Dates: start: 20020619, end: 20030303
  5. PREMARIN [Suspect]
     Indication: MENOPAUSAL SYMPTOMS
     Dosage: .625 MG
     Dates: start: 19961106, end: 20000301
  6. PREMARIN H-C VAGINAL CREAM [Suspect]
     Indication: MENOPAUSAL SYMPTOMS
     Dosage: UNKNOWN
     Dates: start: 20010807, end: 20020424
  7. MEDROXYPROGESTERONE [Suspect]
     Indication: MENOPAUSAL SYMPTOMS
     Dosage: 5 MG
     Dates: start: 19970522, end: 19991130

REACTIONS (6)
  - ANAEMIA [None]
  - ANXIETY [None]
  - BREAST CANCER FEMALE [None]
  - BREAST CANCER IN SITU [None]
  - DEPRESSION [None]
  - LIBIDO DECREASED [None]
